FAERS Safety Report 9500065 (Version 1)
Quarter: 2013Q3

REPORT INFORMATION
  Report Type: Spontaneous
  Country: CA (occurrence: None)
  Receive Date: 20130903
  Receipt Date: 20130903
  Transmission Date: 20140515
  Serious: Yes (Death)
  Sender: FDA-Public Use
  Company Number: IPC201308-000349

PATIENT
  Age: 65 Year
  Sex: 0

DRUGS (3)
  1. ALLOPURINOL [Suspect]
  2. AZATHIOPRINE [Suspect]
  3. MERCAPTOPURINE [Suspect]

REACTIONS (1)
  - Pancreatic carcinoma [None]
